FAERS Safety Report 16833975 (Version 2)
Quarter: 2019Q3

REPORT INFORMATION
  Report Type: Spontaneous
  Country: US (occurrence: US)
  Receive Date: 20190920
  Receipt Date: 20190927
  Transmission Date: 20191005
  Serious: No
  Sender: FDA-Public Use
  Company Number: US-PFIZER INC-2019405666

PATIENT
  Age: 60 Year
  Sex: Female
  Weight: 90.7 kg

DRUGS (1)
  1. LYRICA [Suspect]
     Active Substance: PREGABALIN
     Indication: COMPLEX REGIONAL PAIN SYNDROME
     Dosage: UNK
     Route: 048
     Dates: start: 2004

REACTIONS (4)
  - Dysgeusia [Unknown]
  - Hypoaesthesia [Unknown]
  - Off label use [Unknown]
  - Drug ineffective for unapproved indication [Unknown]
